FAERS Safety Report 6174879-X (Version None)
Quarter: 2009Q2

REPORT INFORMATION
  Report Type: 
  Country: None (occurrence: None)
  Receive Date: 20090424
  Receipt Date: 20090217
  Transmission Date: 20091009
  Serious: No
  Sender: FDA-Public Use
  Company Number: SPV1-2009-00253

PATIENT
  Age: 9 Year
  Sex: Male
  Weight: 27.2 kg

DRUGS (1)
  1. VYVANSE [Suspect]
     Indication: ATTENTION DEFICIT/HYPERACTIVITY DISORDER
     Dosage: 20 MG, 1X/DAY:QD, ORAL
     Route: 048
     Dates: start: 20090217

REACTIONS (3)
  - DIZZINESS [None]
  - DRY MOUTH [None]
  - HALLUCINATION, VISUAL [None]
